FAERS Safety Report 9153920 (Version 1)
Quarter: 2013Q1

REPORT INFORMATION
  Report Type: Spontaneous
  Country: US (occurrence: None)
  Receive Date: 20130308
  Receipt Date: 20130308
  Transmission Date: 20140127
  Serious: Yes (Other)
  Sender: FDA-Public Use
  Company Number: None

PATIENT
  Age: 34 Year
  Sex: Female
  Weight: 77.11 kg

DRUGS (2)
  1. BUPROPION HCL XL [Suspect]
     Indication: ANXIETY
     Dates: start: 20121115, end: 20130307
  2. BUPROPION HCL XL [Suspect]
     Indication: DEPRESSION
     Dates: start: 20121115, end: 20130307

REACTIONS (3)
  - Product substitution issue [None]
  - Anxiety [None]
  - Condition aggravated [None]
